FAERS Safety Report 7491209-1 (Version None)
Quarter: 2011Q2

REPORT INFORMATION
  Report Type: 
  Country: None (occurrence: None)
  Receive Date: 20110518
  Receipt Date: 20110503
  Transmission Date: 20111010
  Serious: Yes (Hospitalization)
  Sender: FDA-Public Use
  Company Number: JPI-P-014848

PATIENT
  Age: 29 Year
  Sex: Female

DRUGS (2)
  1. XYREM [Suspect]
     Indication: NARCOLEPSY
     Dosage: SEE IMAGE
     Route: 048
     Dates: start: 20070924
  2. XYREM [Suspect]
     Indication: NARCOLEPSY
     Dosage: SEE IMAGE
     Route: 048
     Dates: start: 20101014

REACTIONS (12)
  - INITIAL INSOMNIA [None]
  - DIZZINESS [None]
  - PAIN IN EXTREMITY [None]
  - MUSCLE SPASMS [None]
  - MIGRAINE [None]
  - PALPITATIONS [None]
  - FEELING ABNORMAL [None]
  - DECREASED APPETITE [None]
  - WEIGHT DECREASED [None]
  - DYSPNOEA [None]
  - NAUSEA [None]
  - SINUSITIS [None]
